FAERS Safety Report 17511010 (Version 1)
Quarter: 2020Q1

REPORT INFORMATION
  Report Type: Report from Study
  Country: CO (occurrence: CO)
  Receive Date: 20200306
  Receipt Date: 20200306
  Transmission Date: 20200409
  Serious: No
  Sender: FDA-Public Use
  Company Number: CO-JNJFOC-20191220262

PATIENT
  Age: 41 Year
  Sex: Male
  Weight: 98 kg

DRUGS (2)
  1. STELARA [Suspect]
     Active Substance: USTEKINUMAB
     Indication: PSORIASIS
     Dosage: THE LATEST USTEKINUMAB ADMINISTRATION WAS ON AUG/24/2019.
     Route: 058
     Dates: start: 20130709, end: 20171215
  2. STELARA [Suspect]
     Active Substance: USTEKINUMAB
     Dosage: THE LATEST USTEKINUMAB ADMINISTRATION WAS ON 24-AUG-2019
     Route: 058
     Dates: start: 20190112

REACTIONS (2)
  - Psoriasis [Recovered/Resolved]
  - Hepatic steatosis [Unknown]

NARRATIVE: CASE EVENT DATE: 201911
